FAERS Safety Report 5297836-4 (Version None)
Quarter: 2007Q2

REPORT INFORMATION
  Report Type: 
  Country: None (occurrence: None)
  Receive Date: 20070413
  Receipt Date: 20070413
  Transmission Date: 20071010
  Serious: Yes (Death, Hospitalization)
  Sender: FDA-Public Use
  Company Number: None

PATIENT
  Sex: Female
  Weight: 82.3 kg

DRUGS (12)
  1. CELEBREX [Suspect]
     Dosage: 290000 MG
  2. CYCLOPHOSPHAMIDE [Suspect]
     Dosage: 17040 MG
  3. DOXORUBICIN HYDROCHLORIDE [Suspect]
     Dosage: 750 MG
  4. ETOPOSIDE [Suspect]
     Dosage: 6975 MG
  5. IFOSFAMIDE [Suspect]
     Dosage: 125500 MG
  6. VINBLASTINE SULFATE [Suspect]
     Dosage: 243 MG
  7. VINCRISTINE SULFATE [Suspect]
     Dosage: 14 MG
  8. BOSENTAN [Concomitant]
  9. ENALAPRIL [Concomitant]
  10. FLOVENT [Concomitant]
  11. LASIX [Concomitant]
  12. PREDNISONE TAB [Concomitant]

REACTIONS (7)
  - CARDIAC ARREST [None]
  - PANCYTOPENIA [None]
  - PERICARDIAL EFFUSION [None]
  - PERICARDITIS CONSTRICTIVE [None]
  - PULMONARY HYPERTENSION [None]
  - PULMONARY OEDEMA [None]
  - RADIATION PNEUMONITIS [None]
